FAERS Safety Report 24024956 (Version 2)
Quarter: 2024Q2

REPORT INFORMATION
  Report Type: Report from Study
  Country: RO (occurrence: RO)
  Receive Date: 20240628
  Receipt Date: 20240628
  Transmission Date: 20240715
  Serious: No
  Sender: FDA-Public Use
  Company Number: RO-ROCHE-3462133

PATIENT
  Age: 33 Year
  Sex: Female

DRUGS (1)
  1. PHESGO [Suspect]
     Active Substance: HYALURONIDASE-ZZXF\PERTUZUMAB\TRASTUZUMAB
     Indication: Breast neoplasm
     Dosage: 600MG/600MG
     Route: 058

REACTIONS (4)
  - Dizziness [Unknown]
  - Angina pectoris [Unknown]
  - Illness [Unknown]
  - Hypersensitivity [Unknown]
